FAERS Safety Report 8583266 (Version 3)
Quarter: 2013Q1

REPORT INFORMATION
  Report Type: Spontaneous
  Country: SE (occurrence: SE)
  Receive Date: 20120529
  Receipt Date: 20130320
  Transmission Date: 20140127
  Serious: Yes (Other)
  Sender: FDA-Public Use
  Company Number: SE-ELI_LILLY_AND_COMPANY-SE201205005569

PATIENT
  Age: 16 Year
  Sex: Male
  Weight: 75.5 kg

DRUGS (5)
  1. STRATTERA [Suspect]
     Indication: ATTENTION DEFICIT/HYPERACTIVITY DISORDER
     Dosage: 25 MG, QD
     Route: 048
     Dates: start: 201111, end: 201111
  2. STRATTERA [Suspect]
     Dosage: 50 MG, QD
     Route: 048
     Dates: start: 201111
  3. STRATTERA [Suspect]
     Dosage: 25 MG, QD
     Route: 048
  4. CONCERTA [Concomitant]
     Indication: ATTENTION DEFICIT/HYPERACTIVITY DISORDER
     Dosage: 72 MG, QD
     Dates: start: 201102
  5. ACURA [Concomitant]

REACTIONS (2)
  - Syncope [Recovered/Resolved]
  - Presyncope [Unknown]
